FAERS Safety Report 13170819 (Version 3)
Quarter: 2017Q1

REPORT INFORMATION
  Report Type: Spontaneous
  Country: KR (occurrence: KR)
  Receive Date: 20170131
  Receipt Date: 20170307
  Transmission Date: 20170428
  Serious: Yes (Hospitalization)
  Sender: FDA-Public Use
  Company Number: KR-009507513-1701KOR012190

PATIENT
  Age: 51 Year
  Sex: Female
  Weight: 63.7 kg

DRUGS (9)
  1. EMEND (FOSAPREPITANT DIMEGLUMINE) [Suspect]
     Active Substance: FOSAPREPITANT DIMEGLUMINE
     Dosage: 150 MG, ONCE
     Route: 042
  2. CISPLAN [Concomitant]
     Active Substance: CISPLATIN
     Indication: CHEMOTHERAPY
     Dosage: (STREGHT 10MG/20ML) 98 MG, ONCE, CYCLE 1
     Route: 042
     Dates: start: 20161228, end: 20161228
  3. LASIX [Concomitant]
     Active Substance: FUROSEMIDE
     Indication: PROPHYLAXIS
     Dosage: 20 MG, ONCE. STRENGTH: 20MG/2ML
     Route: 042
     Dates: start: 20161228, end: 20161228
  4. TRIDOL (TRAMADOL HYDROCHLORIDE) [Concomitant]
     Indication: PAIN
     Dosage: 50 MG, TID
     Route: 042
     Dates: start: 20161228, end: 20170101
  5. TRIDOL (TRAMADOL HYDROCHLORIDE) [Concomitant]
     Indication: PAIN
     Dosage: 50 MG, ONCE. STRENGTH: 50MG/ML
     Route: 042
     Dates: start: 20161227, end: 20161227
  6. EMEND (FOSAPREPITANT DIMEGLUMINE) [Suspect]
     Active Substance: FOSAPREPITANT DIMEGLUMINE
     Indication: PROPHYLAXIS OF NAUSEA AND VOMITING
     Dosage: 150 MG, ONCE
     Route: 042
     Dates: start: 20161228, end: 20161228
  7. TS-1 [Concomitant]
     Active Substance: GIMERACIL\OTERACIL\TEGAFUR
     Indication: CHEMOTHERAPY
     Dosage: 3 DF, BID, CYCLE 1
     Route: 048
     Dates: start: 20161228, end: 20170110
  8. DEXAMETHASONE DISODIUM PHOSPHATE KUKJE [Concomitant]
     Indication: PROPHYLAXIS OF NAUSEA AND VOMITING
     Dosage: 10 MG, ONCE. STRENGTH: 5MG/ML
     Route: 042
     Dates: start: 20161228, end: 20161228
  9. ALOXI [Concomitant]
     Active Substance: PALONOSETRON HYDROCHLORIDE
     Indication: PROPHYLAXIS OF NAUSEA AND VOMITING
     Dosage: 0.25 MG, ONCE
     Route: 042
     Dates: start: 20161228, end: 20161228

REACTIONS (1)
  - Nausea [Recovered/Resolved]

NARRATIVE: CASE EVENT DATE: 20161229
